FAERS Safety Report 5780539-7 (Version None)
Quarter: 2008Q2

REPORT INFORMATION
  Report Type: 
  Country: None (occurrence: None)
  Receive Date: 20080620
  Receipt Date: 20080609
  Transmission Date: 20081010
  Serious: Yes (Hospitalization, Other)
  Sender: FDA-Public Use
  Company Number: US-BAYER-200812381BCC

PATIENT
  Age: 76 Year
  Sex: Female

DRUGS (5)
  1. ASPIRIN [Suspect]
     Indication: DRUG USE FOR UNKNOWN INDICATION
     Route: 048
  2. LOVENOX [Suspect]
     Indication: PREOPERATIVE CARE
     Route: 058
     Dates: start: 20080511, end: 20080501
  3. HEPARIN [Suspect]
     Indication: PREOPERATIVE CARE
  4. BETA BLOCKER [Concomitant]
  5. ACE INHIBITOR [Concomitant]

REACTIONS (3)
  - ANAEMIA [None]
  - HYPOTENSION [None]
  - RETROPERITONEAL HAEMORRHAGE [None]
